FAERS Safety Report 24817740 (Version 1)
Quarter: 2025Q1

REPORT INFORMATION
  Report Type: Spontaneous
  Country: FR (occurrence: FR)
  Receive Date: 20250108
  Receipt Date: 20250108
  Transmission Date: 20250409
  Serious: Yes (Hospitalization)
  Sender: UCB
  Company Number: None

PATIENT
  Age: 88 Year
  Sex: Female
  Weight: 72.6 kg

DRUGS (6)
  1. KEPPRA [Suspect]
     Active Substance: LEVETIRACETAM
     Indication: Cognitive disorder
     Route: 048
     Dates: start: 20241130
  2. AUGMENTIN [Suspect]
     Active Substance: AMOXICILLIN\CLAVULANATE POTASSIUM
     Indication: Pneumonia
     Route: 048
     Dates: start: 20241130
  3. RISPERIDONE [Concomitant]
     Active Substance: RISPERIDONE
  4. OXAZEPAM [Concomitant]
     Active Substance: OXAZEPAM
  5. MELATONIN [Concomitant]
     Active Substance: MELATONIN
  6. PREGABALIN [Concomitant]
     Active Substance: PREGABALIN

REACTIONS (1)
  - Mixed liver injury [Recovering/Resolving]

NARRATIVE: CASE EVENT DATE: 20241219
